FAERS Safety Report 9421905 (Version 2)
Quarter: 2013Q3

REPORT INFORMATION
  Report Type: Spontaneous
  Country: US (occurrence: US)
  Receive Date: 20130726
  Receipt Date: 20130730
  Transmission Date: 20140515
  Serious: Yes (Other)
  Sender: FDA-Public Use
  Company Number: US-PFIZER INC-2013217149

PATIENT
  Age: 66 Year
  Sex: Female
  Weight: 98.87 kg

DRUGS (17)
  1. CELEBREX [Suspect]
     Indication: RHEUMATOID ARTHRITIS
     Dosage: 200 MG, 1X/DAY
  2. LOSARTAN [Concomitant]
     Dosage: 50 MG, UNK
  3. DIAZEPAM [Concomitant]
     Dosage: 0.5 MG, UNK
  4. FOLIC ACID [Concomitant]
     Dosage: 1 MG, UNK
  5. NEXIUM [Concomitant]
     Dosage: 40 MG, UNK
  6. LEVOTHYROXINE [Concomitant]
     Dosage: 75 MG, UNK
  7. METHOTREXATE [Concomitant]
     Dosage: 2.5 MG, UNK
  8. METFORMIN [Concomitant]
     Dosage: 1000 MG, 2X/DAY
  9. WARFARIN [Concomitant]
     Dosage: 5 MG, UNK
  10. SOTALOL [Concomitant]
     Dosage: 80 MG, UNK
  11. LORAZEPAM [Concomitant]
     Dosage: 0.5 MG, UNK
  12. FUROSEMIDE [Concomitant]
     Dosage: 40 MG, UNK
  13. CORTISONE [Concomitant]
     Dosage: 5 MG, UNK
  14. AMLODIPINE [Concomitant]
     Dosage: 5 MG, UNK
  15. SERTRALINE [Concomitant]
     Dosage: 50 MG, UNK
  16. CRESTOR [Concomitant]
     Dosage: 5 MG, UNK
  17. JANUVIA [Concomitant]
     Dosage: 100 MG, UNK

REACTIONS (2)
  - Myocardial infarction [Unknown]
  - Pain [Unknown]
